FAERS Safety Report 6429548-5 (Version None)
Quarter: 2009Q4

REPORT INFORMATION
  Report Type: 
  Country: None (occurrence: None)
  Receive Date: 20091103
  Receipt Date: 20091022
  Transmission Date: 20100525
  Serious: Yes (Other)
  Sender: FDA-Public Use
  Company Number: CIP09001858

PATIENT
  Age: 78 Year
  Sex: Male

DRUGS (8)
  1. ACTONEL [Suspect]
     Dosage: 150 MG ONCE MONTHLY, ORAL; 150 MG, 1/MONTH
     Route: 048
     Dates: start: 20090101
  2. ACTONEL [Suspect]
     Dosage: 150 MG ONCE MONTHLY, ORAL; 150 MG, 1/MONTH
     Route: 048
     Dates: start: 20090701
  3. ZOCOR [Concomitant]
  4. LISINOPRIL [Concomitant]
  5. FLOMAX /00889901/ (MORNIFLUMATE) [Concomitant]
  6. ASPIRIN [Concomitant]
  7. NEXIUM [Concomitant]
  8. ALL OTHER THERAPEUTIC PRODUCTS [Concomitant]

REACTIONS (9)
  - ABDOMINAL DISTENSION [None]
  - ABDOMINAL PAIN [None]
  - BURNING SENSATION [None]
  - GALLBLADDER OPERATION [None]
  - GINGIVAL PAIN [None]
  - GLOSSODYNIA [None]
  - OEDEMA MOUTH [None]
  - ORAL PAIN [None]
  - STOMATITIS [None]
